FAERS Safety Report 24648751 (Version 1)
Quarter: 2024Q4

REPORT INFORMATION
  Report Type: Spontaneous
  Country: US (occurrence: US)
  Receive Date: 20241121
  Receipt Date: 20241121
  Transmission Date: 20250114
  Serious: No
  Sender: MERCK
  Company Number: US-009507513-2411USA008047

PATIENT
  Age: 59 Year
  Sex: Male

DRUGS (4)
  1. WINREVAIR [Suspect]
     Active Substance: SOTATERCEPT-CSRK
     Indication: Heritable pulmonary arterial hypertension
     Dosage: 1 INJECTION EVERY 3 WEEKS
     Route: 058
     Dates: start: 202409
  2. VELETRI [Concomitant]
     Active Substance: EPOPROSTENOL
  3. SILDENAFIL [Concomitant]
     Active Substance: SILDENAFIL
  4. OPSUMIT [Concomitant]
     Active Substance: MACITENTAN

REACTIONS (1)
  - Metamyelocyte percentage increased [Not Recovered/Not Resolved]

NARRATIVE: CASE EVENT DATE: 20241113
